FAERS Safety Report 9479545 (Version 2)
Quarter: 2013Q4

REPORT INFORMATION
  Report Type: Report from Study
  Country: DE (occurrence: DE)
  Receive Date: 20130827
  Receipt Date: 20131217
  Transmission Date: 20140711
  Serious: Yes (Hospitalization)
  Sender: FDA-Public Use
  Company Number: DE-ROCHE-1266601

PATIENT
  Age: 57 Year
  Sex: Female

DRUGS (5)
  1. RITUXIMAB [Suspect]
     Indication: RHEUMATOID ARTHRITIS
     Route: 065
     Dates: start: 20120808
  2. RITUXIMAB [Suspect]
     Route: 065
     Dates: start: 20130305
  3. HYDROXYCHLOROQUINE [Suspect]
     Indication: RHEUMATOID ARTHRITIS
     Route: 065
     Dates: start: 20120808
  4. HYDROXYCHLOROQUINE [Suspect]
     Route: 065
     Dates: start: 20130122
  5. HYDROXYCHLOROQUINE [Suspect]
     Route: 065
     Dates: start: 20130305

REACTIONS (1)
  - Colitis [Recovered/Resolved]
